FAERS Safety Report 7404855-8 (Version None)
Quarter: 2011Q1

REPORT INFORMATION
  Report Type: 
  Country: None (occurrence: None)
  Receive Date: 20110301
  Receipt Date: 20101207
  Transmission Date: 20110831
  Serious: Yes (Hospitalization, Other)
  Sender: FDA-Public Use
  Company Number: RB-19149-2010

PATIENT
  Sex: Male

DRUGS (2)
  1. SUBOXONE [Suspect]
     Indication: DRUG DEPENDENCE
     Dosage: (16 MG QD TRANSPLACENTAL)
     Route: 064
  2. SUBUTEX [Suspect]
     Indication: DRUG DEPENDENCE
     Dosage: (16 MG QD TRANSPLACENTAL)
     Route: 064
     Dates: end: 20100928

REACTIONS (1)
  - DRUG WITHDRAWAL SYNDROME NEONATAL [None]
